FAERS Safety Report 12574027 (Version 1)
Quarter: 2016Q3

REPORT INFORMATION
  Report Type: Report from Study
  Country: US (occurrence: US)
  Receive Date: 20160720
  Receipt Date: 20160720
  Transmission Date: 20161109
  Serious: Yes (Other)
  Sender: FDA-Public Use
  Company Number: US-AMGEN-USASL2016091284

PATIENT
  Age: 67 Year
  Sex: Female

DRUGS (5)
  1. LISINOPRIL. [Concomitant]
     Active Substance: LISINOPRIL
  2. REPATHA [Suspect]
     Active Substance: EVOLOCUMAB
     Indication: HYPERLIPIDAEMIA
     Dosage: UNK UNK, Q2WK
     Route: 065
     Dates: start: 201604
  3. REPATHA [Suspect]
     Active Substance: EVOLOCUMAB
     Indication: BLOOD TRIGLYCERIDES INCREASED
  4. ATORVASTATIN [Suspect]
     Active Substance: ATORVASTATIN
     Indication: PRODUCT USED FOR UNKNOWN INDICATION
     Route: 065
  5. METOPROLOL. [Concomitant]
     Active Substance: METOPROLOL

REACTIONS (12)
  - Swelling [Unknown]
  - Fatigue [Unknown]
  - Breast cancer [Unknown]
  - Skin exfoliation [Unknown]
  - Injection site rash [Recovering/Resolving]
  - Rash [Unknown]
  - Weight decreased [Unknown]
  - Nausea [Unknown]
  - Neuropathy peripheral [Unknown]
  - Hypotension [Unknown]
  - Macule [Unknown]
  - Skin discolouration [Unknown]

NARRATIVE: CASE EVENT DATE: 2016
